FAERS Safety Report 8373717-4 (Version None)
Quarter: 2012Q2

REPORT INFORMATION
  Report Type: 
  Country: None (occurrence: None)
  Receive Date: 20120521
  Receipt Date: 20120514
  Transmission Date: 20120825
  Serious: Yes (Death)
  Sender: FDA-Public Use
  Company Number: CN-ROCHE-1020829

PATIENT

DRUGS (4)
  1. UNFRACTIONATED HEPARIN [Concomitant]
     Indication: ACUTE MYOCARDIAL INFARCTION
  2. ALTEPLASE [Suspect]
     Indication: ACUTE MYOCARDIAL INFARCTION
  3. ASPIRIN [Concomitant]
     Indication: ACUTE MYOCARDIAL INFARCTION
  4. CLOPIDOGREL [Concomitant]
     Indication: ACUTE MYOCARDIAL INFARCTION

REACTIONS (1)
  - SUDDEN DEATH [None]
